FAERS Safety Report 16442033 (Version 1)
Quarter: 2019Q2

REPORT INFORMATION
  Report Type: Report from Study
  Country: None (occurrence: US)
  Receive Date: 20190617
  Receipt Date: 20190617
  Transmission Date: 20190711
  Serious: No
  Sender: FDA-Public Use
  Company Number: US-US WORLDMEDS, LLC-USW201811-001762

PATIENT
  Sex: Male

DRUGS (4)
  1. NEUPRO [Concomitant]
     Active Substance: ROTIGOTINE
  2. CARBIDOPA / LEVODOPA [Concomitant]
     Active Substance: CARBIDOPA\LEVODOPA
  3. APOKYN [Suspect]
     Active Substance: APOMORPHINE HYDROCHLORIDE
     Indication: PARKINSON^S DISEASE
     Route: 058
  4. ESMOLOLAC [Concomitant]

REACTIONS (8)
  - Muscle rigidity [Unknown]
  - Poor quality sleep [Unknown]
  - Tremor [Unknown]
  - Anxiety [Unknown]
  - Depressed mood [Unknown]
  - Asthenia [Unknown]
  - Drug ineffective [Unknown]
  - Depression [Unknown]
